FAERS Safety Report 6094128-0 (Version None)
Quarter: 2009Q1

REPORT INFORMATION
  Report Type: 
  Country: None (occurrence: None)
  Receive Date: 20090226
  Receipt Date: 20090220
  Transmission Date: 20090719
  Serious: Yes (Life-Threatening)
  Sender: FDA-Public Use
  Company Number: FR-ROCHE-616170

PATIENT
  Sex: Male

DRUGS (7)
  1. VALIUM [Suspect]
     Dosage: FREQUENCY: DAILY.
     Route: 042
     Dates: start: 20081228
  2. FORADIL [Concomitant]
  3. SPIRIVA [Concomitant]
  4. METFORMIN [Concomitant]
     Dosage: 3 DOSES PER DAY.
  5. GLIBENCLAMIDE [Concomitant]
     Dosage: 3 DOSES/ DAY.
  6. SPIRONOLACTONE [Concomitant]
  7. FUROSEMIDE [Concomitant]

REACTIONS (2)
  - CENTRAL-ALVEOLAR HYPOVENTILATION [None]
  - LUNG DISORDER [None]
